FAERS Safety Report 5626384-4 (Version None)
Quarter: 2008Q1

REPORT INFORMATION
  Report Type: 
  Country: None (occurrence: None)
  Receive Date: 20080211
  Receipt Date: 20080131
  Transmission Date: 20080703
  Serious: Yes (Other)
  Sender: FDA-Public Use
  Company Number: JPI-P-002974

PATIENT
  Age: 80 Year
  Sex: Female

DRUGS (6)
  1. LUVOX CR [Suspect]
     Indication: DEPRESSION
     Dosage: ORAL (UP TO 100 MG/DAY), ORAL
     Route: 048
     Dates: start: 20040101, end: 20040909
  2. LUVOX CR [Suspect]
     Indication: DEPRESSION
     Dosage: ORAL (UP TO 100 MG/DAY), ORAL
     Route: 048
     Dates: start: 20040816
  3. NITRAZEPAM [Concomitant]
  4. ASPARTIC ACID (ASPARTIC ACID) [Concomitant]
  5. ACETYLSALICYLIC ACID SRT [Concomitant]
  6. ISOSORBIDE MONONITRATE [Concomitant]

REACTIONS (2)
  - DIABETES MELLITUS [None]
  - HYPONATRAEMIA [None]
